FAERS Safety Report 21102255 (Version 1)
Quarter: 2022Q3

REPORT INFORMATION
  Report Type: Report from Study
  Country: AE (occurrence: AE)
  Receive Date: 20220719
  Receipt Date: 20220719
  Transmission Date: 20221026
  Serious: Yes (Hospitalization)
  Sender: FDA-Public Use
  Company Number: AE-NOVARTISPH-NVSC2022AE161649

PATIENT
  Age: 31 Year
  Sex: Male

DRUGS (5)
  1. MAYZENT [Suspect]
     Active Substance: SIPONIMOD
     Indication: Multiple sclerosis
     Dosage: 1 MG, QID
     Route: 048
     Dates: start: 20210509
  2. VITAMIN C [Concomitant]
     Active Substance: ASCORBIC ACID
     Indication: Product used for unknown indication
     Dosage: UNK, QD
     Route: 065
  3. ZINC [Concomitant]
     Active Substance: ZINC
     Indication: Product used for unknown indication
     Dosage: UNK, QD
     Route: 065
  4. VITAMIN B12 [Concomitant]
     Active Substance: CYANOCOBALAMIN
     Indication: Product used for unknown indication
     Dosage: UNK, QD
     Route: 065
  5. VITAMIN B [Concomitant]
     Active Substance: VITAMIN B
     Indication: Product used for unknown indication
     Dosage: UNK, QD
     Route: 065

REACTIONS (3)
  - Loss of consciousness [Recovered/Resolved]
  - SARS-CoV-2 test positive [Recovered/Resolved]
  - Inappropriate schedule of product administration [Unknown]

NARRATIVE: CASE EVENT DATE: 20220615
